FAERS Safety Report 12153369 (Version 2)
Quarter: 2016Q1

REPORT INFORMATION
  Report Type: Spontaneous
  Country: NG (occurrence: NG)
  Receive Date: 20160306
  Receipt Date: 20160330
  Transmission Date: 20160526
  Serious: Yes (Other)
  Sender: FDA-Public Use
  Company Number: NG-UCBSA-2016006999

PATIENT
  Age: 31 Year
  Sex: Female

DRUGS (1)
  1. KEPPRA [Suspect]
     Active Substance: LEVETIRACETAM
     Indication: EPILEPSY
     Dosage: 1.5 G, ONCE DAILY (QD)
     Dates: start: 20150727

REACTIONS (4)
  - Status epilepticus [Recovered/Resolved]
  - Abdominal discomfort [Unknown]
  - Drug ineffective [Unknown]
  - Loss of consciousness [Recovered/Resolved]

NARRATIVE: CASE EVENT DATE: 20151216
